FAERS Safety Report 4853859-8 (Version None)
Quarter: 2005Q4

REPORT INFORMATION
  Report Type: 
  Country: None (occurrence: None)
  Receive Date: 20051213
  Receipt Date: 20051128
  Transmission Date: 20060501
  Serious: Yes (Hospitalization, Other)
  Sender: FDA-Public Use
  Company Number: US_0507120043

PATIENT
  Age: 35 Year
  Weight: 110.7 kg

DRUGS (13)
  1. ZYPREXA [Suspect]
     Indication: BIPOLAR DISORDER
     Dosage: 5 MG
     Dates: start: 19990414
  2. ZYPREXA [Suspect]
     Indication: BIPOLAR DISORDER
     Dosage: 5 MG
     Dates: start: 19991122
  3. ZYPREXA [Suspect]
     Indication: BIPOLAR DISORDER
     Dosage: 5 MG
     Dates: start: 20001023
  4. ZYPREXA [Suspect]
     Indication: BIPOLAR DISORDER
     Dosage: 5 MG
     Dates: start: 20010117
  5. PROZAC [Concomitant]
  6. CELEXA [Concomitant]
  7. COGENTIN [Concomitant]
  8. TRILAFON [Concomitant]
  9. TRAZODONE HCL [Concomitant]
  10. PROPANOLOL (PROPANOLOL) [Concomitant]
  11. NEURONTIN [Concomitant]
  12. LITHIUM CARBONATE [Concomitant]
  13. RESTORIL [Concomitant]

REACTIONS (13)
  - ASTHENIA [None]
  - BLOOD CHOLESTEROL INCREASED [None]
  - BLOOD TRIGLYCERIDES INCREASED [None]
  - DIABETES MELLITUS [None]
  - DIZZINESS [None]
  - DYSURIA [None]
  - HYPERPHAGIA [None]
  - MELAENA [None]
  - POLYDIPSIA [None]
  - POLYURIA [None]
  - STOMACH DISCOMFORT [None]
  - SYNCOPE [None]
  - WEIGHT INCREASED [None]
